FAERS Safety Report 15888330 (Version 1)
Quarter: 2019Q1

REPORT INFORMATION
  Report Type: Spontaneous
  Country: US (occurrence: US)
  Receive Date: 20190130
  Receipt Date: 20190130
  Transmission Date: 20190417
  Serious: No
  Sender: FDA-Public Use
  Company Number: US-BAYER-2019-017766

PATIENT
  Age: 62 Year
  Sex: Female
  Weight: 85 kg

DRUGS (1)
  1. MIRALAX [Suspect]
     Active Substance: POLYETHYLENE GLYCOL 3350
     Indication: CONSTIPATION PROPHYLAXIS
     Dosage: 1 DF, QD
     Route: 048

REACTIONS (6)
  - Incorrect product administration duration [Unknown]
  - Product use in unapproved indication [Unknown]
  - Product odour abnormal [None]
  - Poor quality product administered [None]
  - Product taste abnormal [None]
  - Extra dose administered [Unknown]

NARRATIVE: CASE EVENT DATE: 2009
